FAERS Safety Report 7745646 (Version 4)
Quarter: 2016Q3

REPORT INFORMATION
  Report Type: Spontaneous
  Country: JP (occurrence: JP)
  Receive Date: 20110103
  Receipt Date: 20160707
  Transmission Date: 20161109
  Serious: Yes (Life-Threatening, Hospitalization, Other)
  Sender: FDA-Public Use
  Company Number: JP-ASTELLAS-2010JP007661

PATIENT
  Age: 61 Year
  Sex: Male

DRUGS (7)
  1. BLOPRESS [Concomitant]
     Active Substance: CANDESARTAN CILEXETIL
     Indication: HYPERTENSION
     Route: 048
  2. OMEPRAL [Concomitant]
     Active Substance: OMEPRAZOLE
     Indication: GASTRITIS PROPHYLAXIS
     Route: 048
  3. LANOCONAZOLE [Concomitant]
     Active Substance: LANOCONAZOLE
     Indication: ORAL LICHEN PLANUS
     Dosage: UNK UNK, UNKNOWN FREQ.
     Route: 061
  4. PROTOPIC [Suspect]
     Active Substance: TACROLIMUS
     Dosage: UNK UNK, 2-3 TIMES DAILY
     Route: 061
     Dates: start: 2009, end: 200910
  5. CONIEL [Concomitant]
     Active Substance: BENIDIPINE HYDROCHLORIDE
     Indication: HYPERTENSION
     Route: 048
  6. PROTOPIC [Suspect]
     Active Substance: TACROLIMUS
     Indication: ORAL LICHEN PLANUS
     Dosage: UNK UNK, 2-3 TIMES DAILY
     Route: 061
     Dates: start: 200808, end: 2009
  7. TRIAMCINOLONE ACETONIDE. [Concomitant]
     Active Substance: TRIAMCINOLONE ACETONIDE
     Indication: ORAL LICHEN PLANUS
     Dosage: UNK UNK, UNKNOWN FREQ.
     Route: 061

REACTIONS (2)
  - Off label use [Unknown]
  - Lip neoplasm malignant stage unspecified [Recovered/Resolved]

NARRATIVE: CASE EVENT DATE: 200808
